FAERS Safety Report 8971499 (Version 2)
Quarter: 2013Q1

REPORT INFORMATION
  Report Type: Spontaneous
  Country: US (occurrence: US)
  Receive Date: 20121217
  Receipt Date: 20130122
  Transmission Date: 20140127
  Serious: Yes (Other)
  Sender: FDA-Public Use
  Company Number: US-PFIZER INC-2012314083

PATIENT
  Age: 46 Year
  Sex: Male
  Weight: 54.42 kg

DRUGS (4)
  1. REVATIO [Suspect]
     Indication: PULMONARY HYPERTENSION
     Dosage: 20 MG, 3X/DAY
     Route: 048
     Dates: start: 2006, end: 20121008
  2. TRACLEER [Concomitant]
     Dosage: UNK
  3. REMODULIN [Concomitant]
     Dosage: UNK
  4. WARFARIN [Concomitant]
     Dosage: UNK

REACTIONS (2)
  - Pulmonary hypertension [Recovered/Resolved]
  - Drug ineffective [Unknown]
